FAERS Safety Report 17100707 (Version 2)
Quarter: 2020Q2

REPORT INFORMATION
  Report Type: Spontaneous
  Country: US (occurrence: US)
  Receive Date: 20191202
  Receipt Date: 20200513
  Transmission Date: 20200713
  Serious: No
  Sender: FDA-Public Use
  Company Number: US-SA-2019SA327857

PATIENT
  Age: 16 Year
  Sex: Female

DRUGS (1)
  1. FABRAZYME [Suspect]
     Active Substance: AGALSIDASE BETA
     Dosage: UNK
     Route: 042
     Dates: start: 20180625

REACTIONS (2)
  - Infusion related reaction [Unknown]
  - Antibody test negative [Unknown]

NARRATIVE: CASE EVENT DATE: 20191111
